FAERS Safety Report 23935453 (Version 1)
Quarter: 2024Q2

REPORT INFORMATION
  Report Type: Spontaneous
  Country: US (occurrence: US)
  Receive Date: 20240604
  Receipt Date: 20240604
  Transmission Date: 20240716
  Serious: Yes (Hospitalization, Other)
  Sender: FDA-Public Use
  Company Number: US-ENDO USA, INC.-2024-001048

PATIENT
  Age: 3 Decade
  Sex: Male

DRUGS (3)
  1. PERCOCET [Suspect]
     Active Substance: ACETAMINOPHEN\OXYCODONE HYDROCHLORIDE
     Indication: Road traffic accident
     Dosage: UNK UNKNOWN, UNKNOWN
     Route: 065
  2. DEPODUR [Suspect]
     Active Substance: MORPHINE SULFATE
     Indication: Road traffic accident
     Dosage: UNK UNKNOWN, UNKNOWN
     Route: 065
  3. OPANA [Suspect]
     Active Substance: OXYMORPHONE HYDROCHLORIDE
     Indication: Road traffic accident
     Dosage: UNK UNKNOWN, UNKNOWN
     Route: 065

REACTIONS (4)
  - Road traffic accident [Unknown]
  - Incoherent [Unknown]
  - Dependence [Unknown]
  - Overdose [Unknown]

NARRATIVE: CASE EVENT DATE: 20060101
